FAERS Safety Report 12079073 (Version 2)
Quarter: 2016Q2

REPORT INFORMATION
  Report Type: Spontaneous
  Country: US (occurrence: US)
  Receive Date: 20160216
  Receipt Date: 20160412
  Transmission Date: 20160815
  Serious: No
  Sender: FDA-Public Use
  Company Number: US-PFIZER INC-2016060306

PATIENT
  Age: 73 Year
  Sex: Female
  Weight: 54.43 kg

DRUGS (3)
  1. LYRICA [Suspect]
     Active Substance: PREGABALIN
     Indication: HERPES ZOSTER
     Dosage: 25 MG CAPSULE, TWICE A DAY
     Route: 048
     Dates: start: 201511
  2. LYRICA [Suspect]
     Active Substance: PREGABALIN
     Dosage: 25 MG, UNK
  3. METOPROLOL SUCC TB ER [Concomitant]
     Indication: HYPERTENSION
     Dosage: 100 MG TABLET, ONCE A DAY, EVERY MORNING AFTER BREAKFAST

REACTIONS (4)
  - Pre-existing condition improved [Not Recovered/Not Resolved]
  - Intentional product use issue [Not Recovered/Not Resolved]
  - Therapeutic response unexpected [Not Recovered/Not Resolved]
  - Pruritus [Unknown]
